FAERS Safety Report 5921937-8 (Version None)
Quarter: 2008Q3

REPORT INFORMATION
  Report Type: 
  Country: None (occurrence: None)
  Receive Date: 20080909
  Receipt Date: 20080624
  Transmission Date: 20090109
  Serious: Yes (Hospitalization, Disabling)
  Sender: FDA-Public Use
  Company Number: 163-20785-08061577

PATIENT
  Age: 79 Year
  Sex: Female

DRUGS (8)
  1. THALOMID [Suspect]
     Indication: MULTIPLE MYELOMA
     Dosage: 50 MG, 1 IN 1 D, ORAL
     Route: 048
     Dates: start: 20080425, end: 20080502
  2. NORVASC [Concomitant]
  3. LEVOTHYROXINE SODIUM [Concomitant]
  4. MEGACE [Concomitant]
  5. METHADONE HCL [Concomitant]
  6. BENICAR [Concomitant]
  7. PAXIL [Concomitant]
  8. PREDNISONE [Concomitant]

REACTIONS (4)
  - ABASIA [None]
  - ASTHENIA [None]
  - NAUSEA [None]
  - VOMITING [None]
